FAERS Safety Report 14440982 (Version 2)
Quarter: 2018Q1

REPORT INFORMATION
  Report Type: Spontaneous
  Country: NL (occurrence: NL)
  Receive Date: 20180125
  Receipt Date: 20180305
  Transmission Date: 20180509
  Serious: Yes (Other)
  Sender: FDA-Public Use
  Company Number: PHHY2018NL009481

PATIENT
  Sex: Male

DRUGS (3)
  1. PARACETAMOL+CODEINE SANDOZ [Suspect]
     Active Substance: ACETAMINOPHEN\CODEINE PHOSPHATE
     Indication: PYREXIA
     Dosage: UNK (500/20)
     Route: 065
  2. PARACETAMOL+CODEINE SANDOZ [Suspect]
     Active Substance: ACETAMINOPHEN\CODEINE PHOSPHATE
     Indication: INFLUENZA
  3. PARACETAMOL+CODEINE SANDOZ [Suspect]
     Active Substance: ACETAMINOPHEN\CODEINE PHOSPHATE
     Indication: BRONCHITIS

REACTIONS (5)
  - Wound [Unknown]
  - Concussion [Unknown]
  - Hypotension [Unknown]
  - Syncope [Unknown]
  - Fall [Unknown]
